FAERS Safety Report 14105116 (Version 1)
Quarter: 2017Q4

REPORT INFORMATION
  Report Type: Report from Study
  Country: US (occurrence: US)
  Receive Date: 20171018
  Receipt Date: 20171018
  Transmission Date: 20180321
  Serious: Yes (Other)
  Sender: FDA-Public Use
  Company Number: US-CORCEPT THERAPEUTICS INC.-US-2017CRT000770

PATIENT

DRUGS (2)
  1. KORLYM [Suspect]
     Active Substance: MIFEPRISTONE
     Indication: CUSHING^S SYNDROME
     Dosage: 300 MG, QD
     Route: 048
     Dates: start: 20170901, end: 20170914
  2. KORLYM [Suspect]
     Active Substance: MIFEPRISTONE
     Dosage: 600 MG, QD
     Route: 048
     Dates: start: 20170915

REACTIONS (6)
  - Pain [Unknown]
  - Peripheral swelling [Unknown]
  - Dyskinesia [Unknown]
  - Dysarthria [Unknown]
  - Tongue biting [Unknown]
  - Myalgia [Unknown]

NARRATIVE: CASE EVENT DATE: 2017
